FAERS Safety Report 16892078 (Version 2)
Quarter: 2019Q4

REPORT INFORMATION
  Report Type: Spontaneous
  Country: CA (occurrence: CA)
  Receive Date: 20191007
  Receipt Date: 20191115
  Transmission Date: 20200122
  Serious: Yes (Other)
  Sender: FDA-Public Use
  Company Number: CA-SHIRE-CA201932606

PATIENT

DRUGS (2)
  1. GAMMAGARD LIQUID [Suspect]
     Active Substance: HUMAN IMMUNOGLOBULIN G
     Indication: PROPHYLAXIS AGAINST TRANSPLANT REJECTION
     Dosage: UNK
     Route: 042
  2. GAMMAGARD LIQUID [Suspect]
     Active Substance: HUMAN IMMUNOGLOBULIN G
     Dosage: UNK
     Route: 042

REACTIONS (7)
  - Hyponatraemia [Unknown]
  - Polyuria [Unknown]
  - Ammonia increased [Recovered/Resolved]
  - Intentional product use issue [Unknown]
  - Expired product administered [Unknown]
  - Hyperglycinaemia [Recovered/Resolved]
  - Encephalopathy [Recovered/Resolved]
